FAERS Safety Report 9072489 (Version 1)
Quarter: 2013Q1

REPORT INFORMATION
  Report Type: Report from Study
  Country: US (occurrence: US)
  Receive Date: 20130129
  Receipt Date: 20130129
  Transmission Date: 20140127
  Serious: No
  Sender: FDA-Public Use
  Company Number: US-ABBOTT-12P-163-0920603-00

PATIENT
  Age: 29 Year
  Sex: Female

DRUGS (2)
  1. HUMIRA 40 MG/0.8 ML PEN [Suspect]
     Indication: PSORIASIS
     Dates: start: 201101
  2. SPRINTEC [Concomitant]
     Indication: CONTRACEPTION
     Dosage: LOW DOSE
     Route: 048

REACTIONS (5)
  - Muscle strain [Not Recovered/Not Resolved]
  - Vulvovaginitis trichomonal [Not Recovered/Not Resolved]
  - Pain [Recovered/Resolved]
  - Restless legs syndrome [Recovered/Resolved]
  - Drug dose omission [Recovered/Resolved]
